FAERS Safety Report 8587687 (Version 4)
Quarter: 2012Q4

REPORT INFORMATION
  Report Type: 
  Country: JP (occurrence: JP)
  Receive Date: 20120531
  Receipt Date: 20121016
  Transmission Date: 20130627
  Serious: Yes (Hospitalization, Other)
  Sender: FDA-Public Use
  Company Number: JP-PFIZER INC-2012128116

PATIENT
  Age: 83 Year
  Sex: Female

DRUGS (5)
  1. ZOSYN [Suspect]
     Indication: PNEUMONIA
     Dosage: 4.5 g, 3x/day
     Route: 041
     Dates: start: 20120509, end: 20120516
  2. WARFARIN [Interacting]
     Indication: ATRIAL FIBRILLATION
     Dosage: 1 mg, 1x/day
     Route: 048
     Dates: start: 20120510, end: 20120516
  3. BAYASPIRIN [Concomitant]
     Indication: ATRIAL FIBRILLATION
     Dosage: 100 mg, 1x/day
     Route: 048
     Dates: start: 20120510, end: 20120517
  4. AMOBANTES [Concomitant]
     Indication: SLEEP DISORDER
     Dosage: 7.5 mg, 1x/day
     Route: 048
  5. TULOBUTEROL [Concomitant]
     Indication: PNEUMONIA
     Dosage: 2 mg, 1x/day

REACTIONS (4)
  - Drug interaction [Recovered/Resolved]
  - Prothrombin time prolonged [Recovered/Resolved]
  - Haemorrhagic diathesis [Recovered/Resolved]
  - Haemoglobin decreased [None]
